FAERS Safety Report 13667883 (Version 4)
Quarter: 2017Q4

REPORT INFORMATION
  Report Type: Report from Study
  Country: US (occurrence: US)
  Receive Date: 20170620
  Receipt Date: 20171009
  Transmission Date: 20180320
  Serious: Yes (Hospitalization, Other)
  Sender: FDA-Public Use
  Company Number: PHEH2017US018673

PATIENT
  Age: 53 Year
  Sex: Female

DRUGS (2)
  1. ILARIS [Suspect]
     Active Substance: CANAKINUMAB
     Indication: CRYOPYRIN ASSOCIATED PERIODIC SYNDROME
     Dosage: 150 MG, EVERY 4WEEKS
     Route: 058
  2. ILARIS [Suspect]
     Active Substance: CANAKINUMAB
     Indication: FAMILIAL MEDITERRANEAN FEVER

REACTIONS (15)
  - Nasal congestion [Unknown]
  - Generalised tonic-clonic seizure [Unknown]
  - Headache [Unknown]
  - Sensory disturbance [Unknown]
  - Loss of consciousness [Unknown]
  - Fall [Unknown]
  - Hypertension [Unknown]
  - Somnolence [Unknown]
  - Asthenia [Unknown]
  - Muscle rigidity [Unknown]
  - Back pain [Unknown]
  - Decubitus ulcer [Unknown]
  - Subdural haematoma [Unknown]
  - Abnormal behaviour [Unknown]
  - Accident [Unknown]

NARRATIVE: CASE EVENT DATE: 20170714
